FAERS Safety Report 12780872 (Version 2)
Quarter: 2016Q3

REPORT INFORMATION
  Report Type: Spontaneous
  Country: US (occurrence: US)
  Receive Date: 20160926
  Receipt Date: 20160928
  Transmission Date: 20161109
  Serious: No
  Sender: FDA-Public Use
  Company Number: US-PFIZER INC-2016446679

PATIENT
  Sex: Female

DRUGS (1)
  1. PREMARIN [Suspect]
     Active Substance: ESTROGENS, CONJUGATED
     Dosage: UNK
     Route: 061

REACTIONS (3)
  - Product quality issue [Unknown]
  - Drug administered at inappropriate site [Unknown]
  - Drug ineffective [Unknown]

NARRATIVE: CASE EVENT DATE: 201609
